FAERS Safety Report 20015830 (Version 1)
Quarter: 2021Q4

REPORT INFORMATION
  Report Type: Spontaneous
  Country: US (occurrence: None)
  Receive Date: 20211101
  Receipt Date: 20211101
  Transmission Date: 20220303
  Serious: Yes (Other)
  Sender: FDA-Public Use
  Company Number: None

PATIENT
  Age: 33 Year
  Sex: Female

DRUGS (1)
  1. HUMIRA [Suspect]
     Active Substance: ADALIMUMAB
     Dosage: OTHER QUANTITY : 40MG/0.4ML;?OTHER FREQUENCY : OTHER;?
     Route: 058
     Dates: start: 202011

REACTIONS (8)
  - Tachycardia [None]
  - Blood pressure decreased [None]
  - Heart rate decreased [None]
  - Heart rate decreased [None]
  - Chills [None]
  - Feeling cold [None]
  - Syncope [None]
  - Crohn^s disease [None]

NARRATIVE: CASE EVENT DATE: 20211008
